FAERS Safety Report 5864608-9 (Version None)
Quarter: 2008Q3

REPORT INFORMATION
  Report Type: 
  Country: None (occurrence: None)
  Receive Date: 20080829
  Receipt Date: 20080711
  Transmission Date: 20090109
  Serious: No
  Sender: FDA-Public Use
  Company Number: US-ABBOTT-08P-163-0462134-00

PATIENT
  Sex: Male
  Weight: 75.364 kg

DRUGS (6)
  1. SIMCOR [Suspect]
     Indication: BLOOD CHOLESTEROL INCREASED
     Dosage: 10MG, CUT IN HALF, DAILY
     Route: 048
     Dates: start: 20080620, end: 20080711
  2. ATORVASTATIN CALCIUM [Concomitant]
     Indication: BLOOD CHOLESTEROL INCREASED
     Route: 048
     Dates: start: 20080711
  3. DIOVAN HCT [Concomitant]
     Indication: CARDIAC DISORDER
     Route: 048
  4. WARFARIN SODIUM [Concomitant]
     Indication: CARDIAC DISORDER
     Route: 048
     Dates: start: 20000101
  5. DUTASTERIDE [Concomitant]
     Indication: PROSTATOMEGALY
     Route: 048
  6. ACETYLSALICYLIC ACID SRT [Concomitant]
     Indication: CARDIAC DISORDER
     Route: 048

REACTIONS (3)
  - FEELING HOT [None]
  - FLUSHING [None]
  - HYPERHIDROSIS [None]
